FAERS Safety Report 7915896-6 (Version None)
Quarter: 2011Q4

REPORT INFORMATION
  Report Type: 
  Country: None (occurrence: None)
  Receive Date: 20111115
  Receipt Date: 20111108
  Transmission Date: 20120403
  Serious: Yes (Other)
  Sender: FDA-Public Use
  Company Number: ES-B.I. PHARMACEUTICALS,INC./RIDGEFIELD-2011-EU-00304BY

PATIENT
  Age: 55 Year
  Sex: Male

DRUGS (3)
  1. TELMISARTAN AND HYDROCHLOROTHIAZIDE [Suspect]
     Indication: HYPERTENSION
     Dosage: 1 ANZ
     Route: 048
     Dates: start: 20110131, end: 20110201
  2. TELMISARTAN AND HYDROCHLOROTHIAZIDE [Suspect]
     Dosage: 1 ANZ
     Route: 048
     Dates: start: 20111007, end: 20111022
  3. CIPRO [Concomitant]
     Route: 065

REACTIONS (1)
  - HAEMATURIA [None]
